FAERS Safety Report 6081004-2 (Version None)
Quarter: 2009Q1

REPORT INFORMATION
  Report Type: 
  Country: None (occurrence: None)
  Receive Date: 20090217
  Receipt Date: 20090213
  Transmission Date: 20090719
  Serious: Yes (Death, Hospitalization)
  Sender: FDA-Public Use
  Company Number: GB-B.I. PHARMACEUTICALS,INC./RIDGEFIELD-2009-UK-00076UK

PATIENT
  Sex: Male

DRUGS (10)
  1. SPIRIVA [Suspect]
     Indication: CHRONIC OBSTRUCTIVE PULMONARY DISEASE
     Dosage: 4ANZ
     Route: 055
  2. BUDESONIDE [Concomitant]
     Indication: ASTHMA
     Dosage: 200NR
     Route: 055
     Dates: start: 20010605, end: 20090114
  3. SALBUTAMOL [Concomitant]
     Indication: ASTHMA
     Route: 055
     Dates: end: 20090114
  4. RISEDRONATE SODIUM [Concomitant]
     Indication: OSTEOPOROSIS
     Dosage: 35 (UNITS NOT REPORTED) WEEKLY
     Route: 048
     Dates: start: 20041025, end: 20090114
  5. ADCAL D3 [Concomitant]
     Indication: OSTEOPOROSIS
     Dosage: 2NR
     Route: 048
     Dates: start: 20041025, end: 20090114
  6. PREDNISOLONE [Concomitant]
     Indication: POLYMYALGIA RHEUMATICA
     Dosage: 5MG
     Dates: start: 20010925, end: 20090114
  7. ASPIRIN [Concomitant]
     Indication: CARDIAC FAILURE
     Dosage: 75NR
     Route: 048
     Dates: start: 20080113, end: 20090114
  8. OMEPRAZOLE [Concomitant]
     Indication: DYSPEPSIA
     Dosage: 20NR
     Dates: start: 20080624, end: 20090114
  9. FRUSEMIDE [Concomitant]
     Indication: CARDIAC FAILURE
     Dosage: 20NR
     Route: 048
     Dates: start: 20080509, end: 20090114
  10. QUININE SULPHATE [Concomitant]
     Indication: MUSCLE SPASMS
     Dosage: 200NR
     Route: 048
     Dates: start: 19950621, end: 20090114

REACTIONS (3)
  - DEATH [None]
  - EPISTAXIS [None]
  - OVERDOSE [None]
